FAERS Safety Report 9922014 (Version 2)
Quarter: 2014Q1

REPORT INFORMATION
  Report Type: Spontaneous
  Country: US (occurrence: US)
  Receive Date: 20140225
  Receipt Date: 20140325
  Transmission Date: 20141002
  Serious: Yes (Other)
  Sender: FDA-Public Use
  Company Number: US-SA-2014SA022527

PATIENT
  Age: 58 Year
  Sex: Male

DRUGS (4)
  1. LANTUS SOLOSTAR [Suspect]
     Indication: TYPE 2 DIABETES MELLITUS
     Dosage: DOSE:35 UNIT(S)
     Route: 051
     Dates: start: 2012
  2. JANUVIA [Suspect]
     Route: 065
  3. METFORMIN [Suspect]
     Route: 065
  4. SOLOSTAR [Concomitant]
     Indication: TYPE 2 DIABETES MELLITUS

REACTIONS (8)
  - Arthritis [Unknown]
  - Ill-defined disorder [Unknown]
  - Back disorder [Unknown]
  - Intervertebral disc disorder [Unknown]
  - Pain [Unknown]
  - Blood glucose increased [Recovered/Resolved]
  - Incorrect product storage [Unknown]
  - Drug dose omission [Unknown]
